FAERS Safety Report 18890999 (Version 2)
Quarter: 2023Q1

REPORT INFORMATION
  Report Type: Spontaneous
  Country: US (occurrence: US)
  Receive Date: 20210215
  Receipt Date: 20230206
  Transmission Date: 20230417
  Serious: No
  Sender: FDA-Public Use
  Company Number: US-SA-SAC20210212000182

PATIENT
  Sex: Male

DRUGS (1)
  1. DUPIXENT [Suspect]
     Active Substance: DUPILUMAB
     Indication: Dermatitis atopic
     Route: 058
     Dates: start: 20190523

REACTIONS (6)
  - Eye disorder [Unknown]
  - Eyelid exfoliation [Unknown]
  - Eye discharge [Unknown]
  - Condition aggravated [Unknown]
  - Eye swelling [Unknown]
  - Eye irritation [Unknown]
